FAERS Safety Report 21439699 (Version 1)
Quarter: 2022Q4

REPORT INFORMATION
  Report Type: Report from Study
  Country: US (occurrence: US)
  Receive Date: 20221011
  Receipt Date: 20221011
  Transmission Date: 20230113
  Serious: No
  Sender: FDA-Public Use
  Company Number: US-ABBVIE-4149638

PATIENT
  Sex: Male
  Weight: 86.2 kg

DRUGS (4)
  1. SKYRIZI [Suspect]
     Active Substance: RISANKIZUMAB-RZAA
     Indication: Psoriasis
     Route: 058
     Dates: start: 2020
  2. Pfizer/BioNTech [Concomitant]
     Indication: COVID-19 immunisation
     Dosage: PFIZER?FIRST DOSE ONE
     Route: 030
     Dates: start: 20210303, end: 20210303
  3. Pfizer/BioNTech [Concomitant]
     Indication: COVID-19 immunisation
     Dosage: THIRD DOSE?ONCE
     Route: 030
     Dates: start: 20211029, end: 20211029
  4. Pfizer/BioNTech [Concomitant]
     Indication: COVID-19 immunisation
     Dosage: SECOND DOSE?ONCE
     Route: 030
     Dates: start: 20210324, end: 20210324

REACTIONS (2)
  - Therapeutic response shortened [Not Recovered/Not Resolved]
  - Psoriasis [Not Recovered/Not Resolved]
